FAERS Safety Report 5221626-1 (Version None)
Quarter: 2007Q1

REPORT INFORMATION
  Report Type: 
  Country: None (occurrence: None)
  Receive Date: 20070126
  Receipt Date: 20070126
  Transmission Date: 20070707
  Serious: Yes (Other)
  Sender: FDA-Public Use
  Company Number: None

PATIENT
  Sex: Female
  Weight: 55 kg

DRUGS (2)
  1. REMICADE [Suspect]
     Indication: RHEUMATOID ARTHRITIS
     Dosage: 300 MG -3 VIALS- PER PROTOCOL IV DRIP
     Route: 041
     Dates: start: 20061213, end: 20061213
  2. REMICADE [Suspect]
     Indication: RHEUMATOID ARTHRITIS
     Dosage: 300 MG -3 VIALS- PER PROTOCOL IV DRIP
     Route: 041
     Dates: start: 20061229, end: 20061229

REACTIONS (2)
  - ASTHENIA [None]
  - INJECTION SITE REACTION [None]
